FAERS Safety Report 15138523 (Version 1)
Quarter: 2018Q3

REPORT INFORMATION
  Report Type: Spontaneous
  Country: US (occurrence: US)
  Receive Date: 20180713
  Receipt Date: 20180713
  Transmission Date: 20181010
  Serious: No
  Sender: FDA-Public Use
  Company Number: US-SHIRE-US201824995

PATIENT
  Sex: Female

DRUGS (1)
  1. LIALDA [Suspect]
     Active Substance: MESALAMINE
     Indication: COLITIS ULCERATIVE
     Dosage: 1.4 G, 1X/DAY:QD
     Route: 065
     Dates: start: 201712

REACTIONS (2)
  - Musculoskeletal discomfort [Unknown]
  - Dysphagia [Unknown]
